FAERS Safety Report 10732974 (Version 1)
Quarter: 2015Q1

REPORT INFORMATION
  Report Type: Spontaneous
  Country: US (occurrence: None)
  Receive Date: 20150120
  Receipt Date: 20150120
  Transmission Date: 20150721
  Serious: Yes (Hospitalization)
  Sender: FDA-Public Use
  Company Number: ABR_01930_2015

PATIENT
  Age: 24 Month
  Sex: Male
  Weight: 13.5 kg

DRUGS (1)
  1. LAMOTRIGINE. [Suspect]
     Active Substance: LAMOTRIGINE
     Indication: POST-TRAUMATIC EPILEPSY
     Dosage: 21 DF 1X, [NOT PRESCRIBED AMOUNT] ORAL
     Route: 048

REACTIONS (6)
  - Agitation [None]
  - Drug dose omission [None]
  - Toxicity to various agents [None]
  - Crying [None]
  - Overdose [None]
  - Myoclonus [None]
